FAERS Safety Report 9640367 (Version 2)
Quarter: 2013Q4

REPORT INFORMATION
  Report Type: Spontaneous
  Country: DE (occurrence: DE)
  Receive Date: 20131023
  Receipt Date: 20131203
  Transmission Date: 20140711
  Serious: Yes (Hospitalization, Other)
  Sender: FDA-Public Use
  Company Number: DE-BAYER-2013-125139

PATIENT
  Age: 52 Year
  Sex: Female

DRUGS (2)
  1. MIRENA [Suspect]
     Dosage: 20 MCG/24HR, CONT
     Route: 015
     Dates: start: 2005
  2. MIRENA [Suspect]
     Dosage: UNK
     Dates: start: 2010

REACTIONS (3)
  - Intraductal proliferative breast lesion [Recovered/Resolved]
  - Mastitis [Recovered/Resolved]
  - Post procedural infection [Recovered/Resolved]
